FAERS Safety Report 10913669 (Version 1)
Quarter: 2015Q1

REPORT INFORMATION
  Report Type: Spontaneous
  Country: US (occurrence: US)
  Receive Date: 20150313
  Receipt Date: 20150313
  Transmission Date: 20150721
  Serious: Yes (Other)
  Sender: FDA-Public Use
  Company Number: US-AMGEN-USASP2015021918

PATIENT
  Age: 54 Year
  Sex: Male

DRUGS (7)
  1. SENSIPAR [Suspect]
     Active Substance: CINACALCET HYDROCHLORIDE
     Indication: PRODUCT USED FOR UNKNOWN INDICATION
     Dosage: 90 MG, QD
     Route: 065
  2. RENVELA [Concomitant]
     Active Substance: SEVELAMER CARBONATE
  3. ZOCOR [Concomitant]
     Active Substance: SIMVASTATIN
  4. EPOGEN [Suspect]
     Active Substance: ERYTHROPOIETIN
     Indication: PRODUCT USED FOR UNKNOWN INDICATION
     Dosage: UNK
     Route: 065
  5. ERGOCALCIFEROL. [Concomitant]
     Active Substance: ERGOCALCIFEROL
  6. CALCITRIOL. [Concomitant]
     Active Substance: CALCITRIOL
  7. METOPROLOL [Concomitant]
     Active Substance: METOPROLOL

REACTIONS (5)
  - Blood phosphorus increased [Unknown]
  - Temporomandibular joint syndrome [Unknown]
  - Post procedural complication [Unknown]
  - Blood parathyroid hormone increased [Unknown]
  - Dysphagia [Unknown]
